FAERS Safety Report 17281020 (Version 1)
Quarter: 2020Q1

REPORT INFORMATION
  Report Type: Spontaneous
  Country: JP (occurrence: JP)
  Receive Date: 20200117
  Receipt Date: 20200117
  Transmission Date: 20200409
  Serious: Yes (Hospitalization)
  Sender: FDA-Public Use
  Company Number: JP-TEVA-2019-JP-1162663

PATIENT
  Age: 83 Year
  Sex: Male

DRUGS (7)
  1. ALINAMIN [Concomitant]
  2. AZILECT [Suspect]
     Active Substance: RASAGILINE MESYLATE
     Indication: PARKINSON^S DISEASE
     Dosage: 1 MILLIGRAM DAILY;
     Route: 048
     Dates: end: 20191224
  3. AMITIZA [Concomitant]
     Active Substance: LUBIPROSTONE
  4. NEODOPASTON [Concomitant]
     Active Substance: CARBIDOPA\LEVODOPA
  5. CARBOCISTEINE [Concomitant]
     Active Substance: CARBOCYSTEINE
  6. TRERIEF [Concomitant]
     Active Substance: ZONISAMIDE
  7. SENNOSIDE A+B [Concomitant]
     Active Substance: SENNOSIDES A AND B

REACTIONS (3)
  - Weight decreased [Recovering/Resolving]
  - Orthostatic hypotension [Recovering/Resolving]
  - Decreased appetite [Recovering/Resolving]

NARRATIVE: CASE EVENT DATE: 20191223
